FAERS Safety Report 7834115-2 (Version None)
Quarter: 2011Q4

REPORT INFORMATION
  Report Type: 
  Country: None (occurrence: None)
  Receive Date: 20111024
  Receipt Date: 20111009
  Transmission Date: 20120403
  Serious: Yes (Hospitalization)
  Sender: FDA-Public Use
  Company Number: PHHY2011CN90175

PATIENT
  Age: 23 Year
  Sex: Male

DRUGS (2)
  1. PEGINTERFERON ALFA-2A [Concomitant]
     Indication: HEPATITIS B SURFACE ANTIGEN POSITIVE
     Dosage: 180 UG, UNK
  2. SEBIVO [Suspect]
     Indication: HEPATITIS B SURFACE ANTIGEN POSITIVE
     Dosage: 600 MG, QD

REACTIONS (19)
  - PNEUMONIA [None]
  - ALANINE AMINOTRANSFERASE INCREASED [None]
  - MYOSITIS [None]
  - BLOOD BILIRUBIN INCREASED [None]
  - RESPIRATORY RATE INCREASED [None]
  - HEPATITIS B [None]
  - LACTIC ACIDOSIS [None]
  - PAIN IN EXTREMITY [None]
  - DEHYDRATION [None]
  - DYSPNOEA [None]
  - WHITE BLOOD CELL COUNT INCREASED [None]
  - BLOOD CREATINE PHOSPHOKINASE INCREASED [None]
  - LOWER RESPIRATORY TRACT INFLAMMATION [None]
  - BLOOD CREATINE PHOSPHOKINASE MB INCREASED [None]
  - INDIFFERENCE [None]
  - BLOOD LACTIC ACID INCREASED [None]
  - BREATH SOUNDS ABNORMAL [None]
  - HEART RATE INCREASED [None]
  - RALES [None]
